FAERS Safety Report 24540313 (Version 3)
Quarter: 2024Q4

REPORT INFORMATION
  Report Type: Spontaneous
  Country: CA (occurrence: CA)
  Receive Date: 20241023
  Receipt Date: 20241223
  Transmission Date: 20250115
  Serious: Yes (Other)
  Sender: PFIZER
  Company Number: CA-PFIZER INC-202400284248

PATIENT
  Age: 67 Year
  Sex: Female

DRUGS (2)
  1. ABRILADA [Suspect]
     Active Substance: ADALIMUMAB-AFZB
     Indication: Psoriatic arthropathy
     Dosage: 40 MG EVERY 2 WEEKS
     Route: 058
     Dates: start: 20220810
  2. SULFASALAZINE [Concomitant]
     Active Substance: SULFASALAZINE
     Indication: Psoriatic arthropathy
     Dosage: 1 G, 2X/DAY DISCONTINUED
     Route: 048
     Dates: start: 20220318, end: 20220802

REACTIONS (1)
  - Hepatic fibrosis [Unknown]
